FAERS Safety Report 7188775-2 (Version None)
Quarter: 2010Q4

REPORT INFORMATION
  Report Type: 
  Country: None (occurrence: None)
  Receive Date: 20101222
  Receipt Date: 20100727
  Transmission Date: 20110411
  Serious: No
  Sender: FDA-Public Use
  Company Number: US-AMGEN-KDL427586

PATIENT

DRUGS (2)
  1. ENBREL [Suspect]
     Indication: PSORIATIC ARTHROPATHY
     Dosage: 50 MG, Q2WK
     Route: 058
  2. METHOTREXATE [Concomitant]
     Dosage: 2.5 MG, QWK

REACTIONS (4)
  - ARTHRALGIA [None]
  - HYPERTENSION [None]
  - INJECTION SITE NODULE [None]
  - VITAMIN D DEFICIENCY [None]
